FAERS Safety Report 21469250 (Version 1)
Quarter: 2022Q4

REPORT INFORMATION
  Report Type: Spontaneous
  Country: IQ (occurrence: IQ)
  Receive Date: 20221018
  Receipt Date: 20221018
  Transmission Date: 20230112
  Serious: Yes (Other)
  Sender: FDA-Public Use
  Company Number: IQ-MACLEODS PHARMACEUTICALS US LTD-MAC2022037824

PATIENT

DRUGS (1)
  1. TRIAMCINOLONE [Suspect]
     Active Substance: TRIAMCINOLONE
     Indication: Alopecia
     Dosage: UNK
     Route: 065

REACTIONS (4)
  - Injection site atrophy [Unknown]
  - Facial wasting [Unknown]
  - Product administered by wrong person [Unknown]
  - Skin hypopigmentation [Unknown]
